FAERS Safety Report 8121674-8 (Version None)
Quarter: 2012Q1

REPORT INFORMATION
  Report Type: 
  Country: None (occurrence: None)
  Receive Date: 20120208
  Receipt Date: 20120203
  Transmission Date: 20120608
  Serious: Yes (Other)
  Sender: FDA-Public Use
  Company Number: US-PFIZER INC-2012030717

PATIENT
  Sex: Male
  Weight: 81.633 kg

DRUGS (10)
  1. MYCOPHENOLATE MOFETIL [Suspect]
     Indication: GRAFT VERSUS HOST DISEASE
     Dosage: 200 MG, 4X/DAY
     Dates: start: 20100901
  2. ACYCLOVIR [Concomitant]
     Indication: PROPHYLAXIS
     Dosage: 400 MG, 2X/DAY
  3. MYCOPHENOLATE MOFETIL [Suspect]
     Dosage: 200 MG, 2X/DAY
  4. VIAGRA [Suspect]
     Dosage: 50 MG, AS NEEDED
     Dates: start: 20110501
  5. MYCOPHENOLATE MOFETIL [Suspect]
     Dosage: 200 MG, DAILY
  6. MYCOPHENOLATE MOFETIL [Suspect]
     Dosage: 200 MG, UNK
     Dates: end: 20120101
  7. BUMETANIDE [Concomitant]
     Indication: DIURETIC THERAPY
     Dosage: 1 MG, DAILY
  8. TAMSULOSIN HYDROCHLORIDE [Concomitant]
     Indication: DYSURIA
     Dosage: 4 MG, DAILY
  9. KLOR-CON [Concomitant]
     Indication: PROPHYLAXIS
     Dosage: 750 MG, 4X/DAY
  10. GABAPENTIN [Concomitant]
     Dosage: UNK

REACTIONS (2)
  - EXPIRED DRUG ADMINISTERED [None]
  - LIVER DISORDER [None]
